FAERS Safety Report 4619159-6 (Version None)
Quarter: 2005Q1

REPORT INFORMATION
  Report Type: 
  Country: None (occurrence: None)
  Receive Date: 20050325
  Receipt Date: 20050318
  Transmission Date: 20050727
  Serious: Yes (Hospitalization)
  Sender: FDA-Public Use
  Company Number: FR-GLAXOSMITHKLINE-B0375528A

PATIENT
  Age: 40 Year
  Sex: Female

DRUGS (6)
  1. EPIVIR [Suspect]
     Indication: HIV INFECTION
     Dosage: 1TAB PER DAY
     Route: 048
     Dates: start: 20040223, end: 20050114
  2. VIRAMUNE [Suspect]
     Indication: HIV INFECTION
     Dosage: 1TAB PER DAY
     Route: 048
     Dates: start: 20040223, end: 20050114
  3. ZERIT [Suspect]
     Indication: HIV INFECTION
     Dosage: 1CAP TWICE PER DAY
     Route: 048
     Dates: start: 20040223, end: 20050114
  4. LEVOTHYROX [Concomitant]
     Dosage: 1TAB PER DAY
     Route: 048
     Dates: start: 20040411
  5. TRANDATE [Concomitant]
     Indication: ESSENTIAL HYPERTENSION
     Route: 048
  6. TRIFLUCAN [Concomitant]
     Dosage: 1CAP PER DAY
     Route: 048

REACTIONS (4)
  - ALANINE AMINOTRANSFERASE INCREASED [None]
  - FATIGUE [None]
  - HYPERLACTACIDAEMIA [None]
  - MITOCHONDRIAL CYTOPATHY [None]
